FAERS Safety Report 7432441-2 (Version None)
Quarter: 2011Q2

REPORT INFORMATION
  Report Type: 
  Country: None (occurrence: None)
  Receive Date: 20110414
  Receipt Date: 20110330
  Transmission Date: 20111010
  Serious: Yes (Hospitalization)
  Sender: FDA-Public Use
  Company Number: 2011FR0094

PATIENT
  Age: 24 Year
  Sex: Female

DRUGS (9)
  1. MYOLOASTAN (TETRAZEPAM) [Concomitant]
  2. IMOVANE (ZOPICLONE) [Concomitant]
  3. DIFFU K (POTASSIUM CHLORIDE) [Concomitant]
  4. INEXIUM (EZOMEPRAZOLE) [Concomitant]
  5. CALCIDOSE (COLECALCIFEROL) [Concomitant]
  6. CORTANCYL (PREDNISONE) [Concomitant]
  7. TRAMADOL HCL [Concomitant]
  8. KINERET [Suspect]
     Indication: JUVENILE ARTHRITIS
     Dosage: 100 MG, SUBCUTANEOUS
     Route: 058
     Dates: start: 20101224, end: 20110124
  9. DOLIPRANE (PARACETAMOL) [Concomitant]

REACTIONS (7)
  - LEUKOPENIA [None]
  - ASTHENIA [None]
  - CYTOLYTIC HEPATITIS [None]
  - NEUTROPENIA [None]
  - VOMITING [None]
  - CHOLESTASIS [None]
  - THROMBOCYTOPENIA [None]
